FAERS Safety Report 10042537 (Version 3)
Quarter: 2017Q3

REPORT INFORMATION
  Report Type: Spontaneous
  Country: US (occurrence: US)
  Receive Date: 20140327
  Receipt Date: 20170713
  Transmission Date: 20171127
  Serious: No
  Sender: FDA-Public Use
  Company Number: US-ASTRAZENECA-2013SE46846

PATIENT
  Age: 59 Year
  Sex: Female
  Weight: 47.8 kg

DRUGS (15)
  1. ALLEGRA [Concomitant]
     Active Substance: FEXOFENADINE HYDROCHLORIDE
     Dosage: 60.0MG UNKNOWN
     Route: 048
  2. VITAMIN B12 [Concomitant]
     Active Substance: CYANOCOBALAMIN
     Indication: VITAMIN B12 DECREASED
     Dosage: 100MCG MONTH
     Route: 058
     Dates: start: 201205
  3. ALBUTEROL RESCUE INHALER [Concomitant]
     Indication: ASTHMA
     Dosage: 100MCG MONTH
     Route: 058
     Dates: start: 201205
  4. PREMARIN [Concomitant]
     Active Substance: ESTROGENS, CONJUGATED
     Route: 048
     Dates: start: 1989
  5. MOMETASONE [Concomitant]
     Active Substance: MOMETASONE
     Indication: ECZEMA
     Dosage: DAILY
     Route: 061
  6. EPIPEN [Concomitant]
     Active Substance: EPINEPHRINE
     Indication: HYPERSENSITIVITY
     Dosage: 100MCG MONTH
     Route: 058
     Dates: start: 201205
  7. NEXIUM [Suspect]
     Active Substance: ESOMEPRAZOLE MAGNESIUM
     Indication: GASTROOESOPHAGEAL REFLUX DISEASE
     Route: 048
     Dates: start: 2008
  8. PRILOSEC OTC [Suspect]
     Active Substance: OMEPRAZOLE MAGNESIUM
     Indication: GASTROOESOPHAGEAL REFLUX DISEASE
     Route: 048
     Dates: start: 2007, end: 2007
  9. XOPENEX [Concomitant]
     Active Substance: LEVALBUTEROL HYDROCHLORIDE
     Indication: ASTHMA
     Dosage: PRN
     Route: 055
     Dates: start: 2009
  10. PULMICORT FLEXHALER [Suspect]
     Active Substance: BUDESONIDE
     Indication: ASTHMA
     Route: 055
     Dates: start: 2006
  11. TYLENOL [Concomitant]
     Active Substance: ACETAMINOPHEN
     Dosage: PRN
     Route: 048
  12. NEXIUM 24HR [Suspect]
     Active Substance: ESOMEPRAZOLE MAGNESIUM
     Indication: GASTROOESOPHAGEAL REFLUX DISEASE
     Route: 048
  13. NEXIUM [Suspect]
     Active Substance: ESOMEPRAZOLE MAGNESIUM
     Indication: GASTROOESOPHAGEAL REFLUX DISEASE
     Route: 048
     Dates: start: 2008
  14. TESTOSTERONE. [Concomitant]
     Active Substance: TESTOSTERONE
     Indication: LIBIDO DISORDER
     Dosage: 1MG/GM DAILY
     Route: 061
     Dates: start: 1995
  15. REFRESH [Concomitant]
     Active Substance: UNSPECIFIED INGREDIENT
     Indication: PH BODY FLUID ABNORMAL
     Route: 050
     Dates: start: 20130606

REACTIONS (18)
  - Gastrooesophageal reflux disease [Unknown]
  - Eczema [Unknown]
  - Adverse event [Unknown]
  - Drug ineffective [Unknown]
  - Basedow^s disease [Unknown]
  - Hypoaesthesia [Unknown]
  - Constipation [Unknown]
  - Underweight [Unknown]
  - Drug dose omission [Unknown]
  - Headache [Unknown]
  - Hyperchlorhydria [Unknown]
  - Skin disorder [Unknown]
  - Lymphadenopathy [Unknown]
  - Hair disorder [Unknown]
  - Vitamin B12 decreased [Unknown]
  - Diarrhoea [Unknown]
  - Vaginal infection [Unknown]
  - Chest discomfort [Unknown]

NARRATIVE: CASE EVENT DATE: 2008
